FAERS Safety Report 8422627-2 (Version None)
Quarter: 2012Q2

REPORT INFORMATION
  Report Type: 
  Country: None (occurrence: None)
  Receive Date: 20120608
  Receipt Date: 20120606
  Transmission Date: 20120825
  Serious: Yes (Death)
  Sender: FDA-Public Use
  Company Number: GB-ROCHE-1060586

PATIENT
  Sex: Female

DRUGS (1)
  1. LUCENTIS [Suspect]
     Indication: AGE-RELATED MACULAR DEGENERATION
     Dosage: LAST DOSE PRIOR TO SAE ON 13/MAY/2011
     Route: 050
     Dates: start: 20080118

REACTIONS (3)
  - CARDIAC FAILURE [None]
  - DEATH [None]
  - LOWER RESPIRATORY TRACT INFECTION [None]
